FAERS Safety Report 15173248 (Version 1)
Quarter: 2018Q3

REPORT INFORMATION
  Report Type: Spontaneous
  Country: GB (occurrence: GB)
  Receive Date: 20180720
  Receipt Date: 20180720
  Transmission Date: 20181010
  Serious: Yes (Other)
  Sender: FDA-Public Use
  Company Number: GB-TEVA-2018-GB-929686

PATIENT
  Age: 93 Year
  Sex: Male
  Weight: 67 kg

DRUGS (8)
  1. SPIRONOLACTONE. [Concomitant]
     Active Substance: SPIRONOLACTONE
  2. IMIQUIMOD. [Suspect]
     Active Substance: IMIQUIMOD
     Indication: BOWEN^S DISEASE
     Dosage: 1 DOSAGE FORMS DAILY; APPLY NIGHTLY
     Route: 061
     Dates: start: 20180419, end: 20180527
  3. QUINIDINE SULFATE. [Concomitant]
     Active Substance: QUINIDINE SULFATE
  4. DIGOXIN. [Concomitant]
     Active Substance: DIGOXIN
  5. BUDESONIDE. [Concomitant]
     Active Substance: BUDESONIDE
  6. LEVOTHYROXINE SODIUM. [Concomitant]
     Active Substance: LEVOTHYROXINE SODIUM
  7. TEVA UK BISOPROLOL [Concomitant]
     Active Substance: BISOPROLOL
  8. WARFARIN [Suspect]
     Active Substance: WARFARIN
     Route: 065

REACTIONS (4)
  - Lethargy [Unknown]
  - Drug interaction [Recovered/Resolved]
  - Fatigue [Unknown]
  - International normalised ratio increased [Unknown]

NARRATIVE: CASE EVENT DATE: 20180606
